FAERS Safety Report 4862600-4 (Version None)
Quarter: 2005Q4

REPORT INFORMATION
  Report Type: 
  Country: None (occurrence: None)
  Receive Date: 20051221
  Receipt Date: 20051213
  Transmission Date: 20060501
  Serious: Yes (Hospitalization)
  Sender: FDA-Public Use
  Company Number: AU-ROCHE-428567

PATIENT
  Age: 58 Year
  Sex: Female

DRUGS (7)
  1. CEFTRIAXONE [Suspect]
     Route: 065
     Dates: start: 20031012, end: 20051014
  2. RULIDE [Suspect]
     Route: 048
     Dates: start: 20051012, end: 20051014
  3. AURORIX [Concomitant]
  4. OGEN [Concomitant]
  5. VENTOLIN [Concomitant]
  6. ATROVENT [Concomitant]
  7. SERETIDE [Concomitant]
     Dosage: REPORTED AS SERTIDE.

REACTIONS (2)
  - MOUTH ULCERATION [None]
  - RASH VESICULAR [None]
